FAERS Safety Report 12918627 (Version 1)
Quarter: 2016Q4

REPORT INFORMATION
  Report Type: Report from Study
  Country: None (occurrence: ES)
  Receive Date: 20161107
  Receipt Date: 20161107
  Transmission Date: 20170207
  Serious: Yes (Hospitalization)
  Sender: FDA-Public Use
  Company Number: ES-ABBVIE-16K-144-1772457-00

PATIENT
  Age: 75 Year
  Sex: Female

DRUGS (1)
  1. DUODOPA [Suspect]
     Active Substance: CARBIDOPA\LEVODOPA
     Indication: PARKINSON^S DISEASE
     Route: 050
     Dates: start: 201407

REACTIONS (3)
  - Stoma site discharge [Recovered/Resolved]
  - Device connection issue [Recovered/Resolved]
  - Unintentional medical device removal [Recovering/Resolving]

NARRATIVE: CASE EVENT DATE: 20161030
